FAERS Safety Report 4612313-9 (Version None)
Quarter: 2005Q1

REPORT INFORMATION
  Report Type: 
  Country: None (occurrence: None)
  Receive Date: 20050308
  Receipt Date: 20050117
  Transmission Date: 20050727
  Serious: Yes (Disabling)
  Sender: FDA-Public Use
  Company Number: 2005UW01257

PATIENT
  Sex: Male

DRUGS (4)
  1. CRESTOR [Suspect]
  2. PRAVACHOL [Suspect]
  3. LIPITOR [Suspect]
  4. NIASPAN [Suspect]

REACTIONS (2)
  - ASTHENIA [None]
  - MYALGIA [None]
